FAERS Safety Report 8844067 (Version 3)
Quarter: 2013Q2

REPORT INFORMATION
  Report Type: Report from Study
  Country: JP (occurrence: JP)
  Receive Date: 20121017
  Receipt Date: 20130522
  Transmission Date: 20140414
  Serious: Yes (Hospitalization, Other)
  Sender: FDA-Public Use
  Company Number: JP-009507513-1210JPN002248

PATIENT
  Age: 64 Year
  Sex: Male
  Weight: 67 kg

DRUGS (17)
  1. PEGINTRON [Suspect]
     Indication: CHRONIC HEPATITIS C
     Dosage: 1.5 MICROGRAM PER KILOGRAM, QW
     Route: 058
     Dates: start: 20120719, end: 20120920
  2. REBETOL [Suspect]
     Indication: CHRONIC HEPATITIS C
     Dosage: 800 MG,QD
     Route: 048
     Dates: start: 20120719, end: 20120729
  3. REBETOL [Suspect]
     Dosage: 600 MG,QD
     Route: 048
     Dates: start: 20120730, end: 20120801
  4. REBETOL [Suspect]
     Dosage: 400 MG, QD
     Route: 048
     Dates: start: 20120802, end: 20120808
  5. REBETOL [Suspect]
     Dosage: 200 MG, QD
     Route: 048
     Dates: start: 20120809, end: 20120923
  6. TELAVIC [Suspect]
     Indication: CHRONIC HEPATITIS C
     Dosage: 1500 MG, QD
     Route: 048
     Dates: start: 20120719, end: 20120923
  7. CALONAL [Concomitant]
     Indication: PROPHYLAXIS
     Dosage: 800 MG PER DAY,AS NEEDED
     Route: 048
     Dates: start: 20120719, end: 20121005
  8. GASTER D [Concomitant]
     Indication: PROPHYLAXIS
     Dosage: 20 MG PER DAY, AS NEEDED
     Route: 048
     Dates: start: 20120719, end: 20120816
  9. ZYLORIC [Concomitant]
     Indication: HYPERURICAEMIA
     Dosage: 200 MG, QD
     Route: 048
     Dates: start: 20120721, end: 20120803
  10. MAGMITT [Concomitant]
     Indication: CONSTIPATION
     Dosage: 990 MG PER DAY, AS NEEDED, POR
     Route: 048
     Dates: start: 20120721, end: 20120727
  11. LAXOBERON [Concomitant]
     Indication: CONSTIPATION
     Dosage: 10 GTT, QD
     Route: 048
     Dates: start: 20120721, end: 20120727
  12. FEBURIC [Concomitant]
     Indication: HYPERURICAEMIA
     Dosage: 10 MG, QD
     Route: 048
     Dates: start: 20120816
  13. FEBURIC [Concomitant]
     Dosage: 40 MG, QD
     Route: 048
     Dates: end: 20120928
  14. PROTECADIN [Concomitant]
     Indication: PROPHYLAXIS
     Dosage: 10 MG, QD
     Route: 048
     Dates: start: 20120906
  15. PROTECADIN [Concomitant]
     Dosage: 20 MG, QD
     Route: 048
     Dates: end: 20120928
  16. RHYTHMY [Concomitant]
     Indication: INSOMNIA
     Dosage: 1 MG, QD
     Route: 048
     Dates: start: 20120920, end: 20120923
  17. VALTREX [Concomitant]
     Indication: HERPES ZOSTER
     Dosage: 3000 MG, QD
     Route: 048
     Dates: start: 20120801, end: 20120807

REACTIONS (4)
  - Blood creatinine increased [Recovering/Resolving]
  - Prostatitis [Recovered/Resolved]
  - Sepsis [Not Recovered/Not Resolved]
  - Platelet count decreased [Not Recovered/Not Resolved]
